FAERS Safety Report 7506339-5 (Version None)
Quarter: 2011Q2

REPORT INFORMATION
  Report Type: 
  Country: None (occurrence: None)
  Receive Date: 20110526
  Receipt Date: 20100924
  Transmission Date: 20111010
  Serious: No
  Sender: FDA-Public Use
  Company Number: US-ABBOTT-10P-163-0673752-00

PATIENT
  Sex: Male
  Weight: 97.61 kg

DRUGS (2)
  1. ZEMPLAR [Suspect]
     Indication: RENAL DISORDER
     Dates: start: 20100601, end: 20100601
  2. CALCITRIOL [Concomitant]
     Indication: PRODUCT USED FOR UNKNOWN INDICATION

REACTIONS (1)
  - PRURITUS [None]
